FAERS Safety Report 22649897 (Version 1)
Quarter: 2023Q2

REPORT INFORMATION
  Report Type: Spontaneous
  Country: US (occurrence: None)
  Receive Date: 20230627
  Receipt Date: 20230627
  Transmission Date: 20230722
  Serious: Yes (Disabling, Other)
  Sender: FDA-Public Use
  Company Number: None

PATIENT
  Age: 65 Year
  Sex: Male

DRUGS (4)
  1. OZEMPIC [Suspect]
     Active Substance: SEMAGLUTIDE
     Indication: Glycosylated haemoglobin increased
     Dosage: FREQUENCY : WEEKLY;?
     Dates: start: 20210914, end: 20220203
  2. HALDOL [Concomitant]
     Active Substance: HALOPERIDOL
  3. AMLODIPINE [Concomitant]
     Active Substance: AMLODIPINE BESYLATE
  4. GLIPIDE ER [Concomitant]

REACTIONS (3)
  - Weight decreased [None]
  - Gastric disorder [None]
  - Vomiting [None]

NARRATIVE: CASE EVENT DATE: 20210914
